FAERS Safety Report 16166308 (Version 1)
Quarter: 2019Q2

REPORT INFORMATION
  Report Type: Other
  Country: None (occurrence: SG)
  Receive Date: 20190406
  Receipt Date: 20190406
  Transmission Date: 20190711
  Serious: Yes (Other)
  Sender: FDA-Public Use
  Company Number: SG-ACIC FINE CHEMICALS INC-2065426

PATIENT
  Age: 5 Year
  Sex: Male

DRUGS (1)
  1. LEVETIRACETAM. [Suspect]
     Active Substance: LEVETIRACETAM

REACTIONS (5)
  - Rash [Recovered/Resolved]
  - Pyrexia [Recovered/Resolved]
  - Lip swelling [Recovered/Resolved]
  - Eosinophilia [None]
  - Transaminases increased [Recovered/Resolved]
